FAERS Safety Report 14834898 (Version 3)
Quarter: 2018Q2

REPORT INFORMATION
  Report Type: Report from Study
  Country: None (occurrence: US)
  Receive Date: 20180501
  Receipt Date: 20180515
  Transmission Date: 20180711
  Serious: Yes (Hospitalization, Other)
  Sender: FDA-Public Use
  Company Number: US-ABBVIE-18P-163-2336989-00

PATIENT
  Age: 54 Year
  Sex: Female

DRUGS (1)
  1. MAVYRET [Suspect]
     Active Substance: GLECAPREVIR\PIBRENTASVIR
     Indication: CHRONIC HEPATITIS C
     Dosage: 100/40MG WEEKLY PACK 21^S
     Route: 048
     Dates: start: 20180411

REACTIONS (8)
  - Panic attack [Not Recovered/Not Resolved]
  - Nausea [Unknown]
  - Anxiety [Not Recovered/Not Resolved]
  - Headache [Unknown]
  - Diarrhoea [Unknown]
  - Constipation [Unknown]
  - Mental disorder [Unknown]
  - Dehydration [Unknown]

NARRATIVE: CASE EVENT DATE: 20180411
